FAERS Safety Report 11364378 (Version 2)
Quarter: 2015Q3

REPORT INFORMATION
  Report Type: Spontaneous
  Country: US (occurrence: US)
  Receive Date: 20150811
  Receipt Date: 20150812
  Transmission Date: 20151125
  Serious: No
  Sender: FDA-Public Use
  Company Number: US-PFIZER INC-2015257016

PATIENT
  Age: 45 Year
  Sex: Male
  Weight: 132 kg

DRUGS (1)
  1. ADVIL [Suspect]
     Active Substance: IBUPROFEN
     Indication: PAIN
     Dosage: 200MG 4 TABLETS BY MOUTH 3 TIMES A DAY
     Route: 048
     Dates: start: 201507

REACTIONS (4)
  - Off label use [Unknown]
  - Overdose [Unknown]
  - Product odour abnormal [Not Recovered/Not Resolved]
  - Poor quality drug administered [Not Recovered/Not Resolved]

NARRATIVE: CASE EVENT DATE: 201507
